FAERS Safety Report 8133523-2 (Version None)
Quarter: 2012Q1

REPORT INFORMATION
  Report Type: 
  Country: None (occurrence: None)
  Receive Date: 20120213
  Receipt Date: 20120206
  Transmission Date: 20120608
  Serious: Yes (Other)
  Sender: FDA-Public Use
  Company Number: JP-PFIZER INC-2012015915

PATIENT
  Age: 62 Year
  Sex: Female

DRUGS (16)
  1. ZOLOFT [Suspect]
     Indication: DEPRESSION
     Dosage: 25MG DAILY
     Route: 048
     Dates: start: 20100402
  2. ZOLOFT [Suspect]
     Dosage: 100MG DAILY
     Route: 048
     Dates: start: 20111102
  3. MIRADOL [Suspect]
     Indication: DEPRESSION
     Dosage: 50 MG, 1X/DAY
     Route: 048
     Dates: start: 20111102
  4. COMESGEN [Concomitant]
     Dosage: 500 UG, 3X/DAY
     Route: 048
  5. ZOLOFT [Suspect]
     Dosage: 75 MG DAILY
     Dates: start: 20110309
  6. COPAN [Concomitant]
     Dosage: 1.5 MG, 3X/DAY
     Route: 048
     Dates: start: 20110309
  7. CRESTOR [Concomitant]
     Dosage: 5 MG, 1X/DAY
     Route: 048
  8. IRSOGLADINE MALEATE [Concomitant]
     Dosage: 2 MG, 2X/DAY
     Route: 048
  9. OPALMON [Concomitant]
     Dosage: 5 UG, 3X/DAY
     Route: 048
  10. EPIRIZOLE HYDROCHLORIDE [Concomitant]
     Dosage: 50 UG, 3X/DAY
     Route: 048
  11. ZOLOFT [Suspect]
     Dosage: 75MG DAILY
     Route: 048
     Dates: start: 20120111
  12. MICARDIS [Concomitant]
     Indication: HYPERTENSION
     Dosage: 20 MG, 1X/DAY
     Route: 048
  13. ZETIA [Concomitant]
     Dosage: 10 MG, 1X/DAY
     Route: 048
  14. DAPAZ [Concomitant]
     Dosage: 0.5 MG, 1X/DAY
     Route: 048
     Dates: start: 20110309
  15. ZOLPIDEM [Concomitant]
     Indication: DEPRESSION
     Dosage: 10 MG, 1X/DAY
     Route: 048
     Dates: start: 20110309
  16. OMEPRAZOLE [Concomitant]
     Dosage: 10 MG, 1X/DAY
     Route: 048

REACTIONS (3)
  - DEPRESSION [None]
  - ELECTROCARDIOGRAM QT PROLONGED [None]
  - TREMOR [None]
